FAERS Safety Report 9209376 (Version 5)
Quarter: 2013Q4

REPORT INFORMATION
  Report Type: Report from Study
  Country: NL (occurrence: NL)
  Receive Date: 20130404
  Receipt Date: 20131031
  Transmission Date: 20140711
  Serious: Yes (Death, Hospitalization)
  Sender: FDA-Public Use
  Company Number: NL-ASTELLAS-2013US003516

PATIENT
  Age: 64 Year
  Sex: Female
  Weight: 55 kg

DRUGS (25)
  1. ERLOTINIB TABLET [Suspect]
     Indication: NON-SMALL CELL LUNG CANCER
     Dosage: 150 MG, UID/QD
     Route: 048
     Dates: start: 20130226, end: 20130326
  2. PLACEBO [Suspect]
     Indication: NON-SMALL CELL LUNG CANCER
     Dosage: 1 DF, Q3W
     Route: 042
     Dates: start: 20130227, end: 20130326
  3. FENTANYL [Concomitant]
     Indication: BACK PAIN
     Dosage: UNK
     Route: 065
     Dates: start: 20121220
  4. FENTANYL [Concomitant]
     Indication: NECK PAIN
  5. OMEPRAZOLE [Concomitant]
     Indication: PRODUCT USED FOR UNKNOWN INDICATION
     Dosage: UNK
     Route: 065
     Dates: start: 20120726, end: 20130314
  6. BUSCOPAN [Concomitant]
     Indication: GASTROINTESTINAL PAIN
     Dosage: UNK
     Route: 065
     Dates: start: 20130102, end: 20130326
  7. FRAGMIN [Concomitant]
     Indication: THROMBOSIS
     Dosage: UNK
     Route: 065
     Dates: start: 201208, end: 20130313
  8. HYDROCOBAMINE [Concomitant]
     Indication: VITAMIN B12 DEFICIENCY
     Dosage: UNK
     Route: 065
     Dates: start: 20120903, end: 20130326
  9. SPIRONOLACTON [Concomitant]
     Indication: HYPERTENSION
     Dosage: UNK
     Route: 065
     Dates: start: 20121204, end: 20130312
  10. PERINDOPRIL [Concomitant]
     Indication: HYPERTENSION
     Dosage: UNK
     Route: 065
     Dates: start: 20121220, end: 20130324
  11. PREDNISONE [Concomitant]
     Indication: ANKYLOSING SPONDYLITIS
     Dosage: UNK
     Route: 065
     Dates: start: 20121220, end: 20130312
  12. PREDNISONE [Concomitant]
     Dosage: UNK
     Route: 065
     Dates: start: 20130313, end: 20130316
  13. IBUPROFEN [Concomitant]
     Indication: BACK PAIN
     Dosage: UNK
     Route: 065
     Dates: start: 20121108, end: 20130312
  14. IMIGRAN                            /01044801/ [Concomitant]
     Indication: MIGRAINE
     Dosage: UNK
     Route: 065
     Dates: start: 201112, end: 20130326
  15. LORMETAZEPAM [Concomitant]
     Indication: PRODUCT USED FOR UNKNOWN INDICATION
     Dosage: UNK
     Route: 065
     Dates: start: 20130102, end: 20130326
  16. TEMAZEPAM [Concomitant]
     Indication: PRODUCT USED FOR UNKNOWN INDICATION
     Dosage: UNK
     Route: 065
     Dates: start: 20121224, end: 20130331
  17. MIRTAZAPINE [Concomitant]
     Indication: STRESS
     Dosage: UNK
     Route: 065
     Dates: start: 20121220
  18. SALBUTAMOL [Concomitant]
     Indication: DYSPNOEA
     Dosage: UNK
     Route: 065
     Dates: start: 20121220, end: 20130312
  19. SALBUTAMOL [Concomitant]
     Dosage: UNK
     Route: 065
     Dates: start: 20130314, end: 20130401
  20. SERETIDE [Concomitant]
     Indication: DYSPNOEA
     Dosage: UNK
     Route: 065
     Dates: start: 20121108, end: 20130326
  21. DOMPERIDON                         /00498201/ [Concomitant]
     Indication: NAUSEA
     Dosage: UNK
     Route: 065
     Dates: start: 20120903, end: 20130326
  22. ONDANSETRON [Concomitant]
     Indication: NAUSEA
     Dosage: UNK
     Route: 065
     Dates: start: 20121116, end: 20120331
  23. CODEINE [Concomitant]
     Indication: NECK PAIN
     Dosage: UNK
     Route: 065
     Dates: start: 20130225, end: 20130227
  24. CODEINE [Concomitant]
     Indication: BACK PAIN
  25. METOCLOPRAMIDE [Concomitant]
     Indication: VOMITING
     Dosage: UNK
     Route: 065
     Dates: start: 20121207, end: 20130326

REACTIONS (3)
  - Malignant neoplasm progression [Fatal]
  - Hypomagnesaemia [Recovered/Resolved]
  - Dyspnoea [Fatal]
